FAERS Safety Report 13152278 (Version 1)
Quarter: 2017Q1

REPORT INFORMATION
  Report Type: Report from Study
  Country: CA (occurrence: CA)
  Receive Date: 20170125
  Receipt Date: 20170125
  Transmission Date: 20170428
  Serious: Yes (Other)
  Sender: FDA-Public Use
  Company Number: CA-GILEAD-2017-0254934

PATIENT
  Age: 64 Year
  Sex: Male

DRUGS (11)
  1. TENOFOVIR DISOPROXIL FUMARATE. [Suspect]
     Active Substance: TENOFOVIR DISOPROXIL FUMARATE
     Indication: PRODUCT USED FOR UNKNOWN INDICATION
     Dosage: UNK
     Route: 065
  2. CODEINE [Concomitant]
     Active Substance: CODEINE
  3. OXYCODONE [Concomitant]
     Active Substance: OXYCODONE
  4. ASA [Concomitant]
     Active Substance: ASPIRIN
  5. ALTACE [Concomitant]
     Active Substance: RAMIPRIL
  6. ZANTAC [Concomitant]
     Active Substance: RANITIDINE HYDROCHLORIDE
  7. LONARID                            /00154101/ [Concomitant]
  8. TESTOSTERONE. [Concomitant]
     Active Substance: TESTOSTERONE
  9. DOMPERIDONE [Concomitant]
     Active Substance: DOMPERIDONE
  10. SYNTHROID [Concomitant]
     Active Substance: LEVOTHYROXINE SODIUM
  11. ZOPICLONE [Concomitant]
     Active Substance: ZOPICLONE

REACTIONS (1)
  - Osteoporosis [Not Recovered/Not Resolved]
